FAERS Safety Report 9436533 (Version 2)
Quarter: 2013Q4

REPORT INFORMATION
  Report Type: Report from Study
  Country: AU (occurrence: AU)
  Receive Date: 20130802
  Receipt Date: 20131211
  Transmission Date: 20140711
  Serious: Yes (Hospitalization, Disabling)
  Sender: FDA-Public Use
  Company Number: AU-OPTIMER-20130110

PATIENT
  Age: 78 Year
  Sex: Female
  Weight: 60.6 kg

DRUGS (14)
  1. FIDAXOMICIN [Suspect]
     Indication: CLOSTRIDIUM DIFFICILE COLITIS
     Dosage: 200 MG, BID
     Route: 048
     Dates: start: 20121224, end: 20130103
  2. FIDAXOMICIN [Suspect]
     Dosage: 200 MG, BID
     Route: 048
     Dates: start: 20131029, end: 20131108
  3. MORPHINE [Concomitant]
     Indication: PAIN
     Dosage: 15 MG, TID
     Route: 058
  4. PREGABALIN [Concomitant]
     Indication: NEURALGIA
     Dosage: 75 MG, BID
     Route: 048
  5. CEPHALEXINE [Concomitant]
     Indication: EXTERNAL EAR CELLULITIS
     Dosage: 500 MG, QID
     Route: 048
     Dates: start: 20121226, end: 20130103
  6. PAROXETINE [Concomitant]
     Indication: DEPRESSION
     Dosage: 20 MG, QD
     Route: 048
  7. ATORVASTATIN [Concomitant]
     Indication: BLOOD CHOLESTEROL INCREASED
     Dosage: 20 MG, QD
  8. OMEPRAZOLE [Concomitant]
     Indication: GASTROOESOPHAGEAL REFLUX DISEASE
     Dosage: 20 MG, QD
  9. DIAZEPAM [Concomitant]
     Indication: ANXIETY
     Dosage: 10 MG, BID
  10. PROMETHAZINE [Concomitant]
     Dosage: 50 MG, BID PRN
  11. ATENOLOL [Concomitant]
     Dosage: UNK
  12. LORATADINE [Concomitant]
     Dosage: UNK
  13. WARFARIN [Concomitant]
     Dosage: UNK
  14. PROCHLORPERAZINE [Concomitant]
     Dosage: UNK

REACTIONS (5)
  - Clostridium difficile colitis [Recovered/Resolved]
  - Disease recurrence [Recovered/Resolved]
  - Nausea [Recovered/Resolved]
  - Treatment failure [Recovered/Resolved]
  - Inappropriate schedule of drug administration [Unknown]
